FAERS Safety Report 8196440-8 (Version None)
Quarter: 2012Q1

REPORT INFORMATION
  Report Type: 
  Country: None (occurrence: None)
  Receive Date: 20120309
  Receipt Date: 20120301
  Transmission Date: 20120608
  Serious: Yes (Hospitalization, Other)
  Sender: FDA-Public Use
  Company Number: US-US-EMD SERONO, INC.-7004743

PATIENT
  Sex: Female

DRUGS (4)
  1. REBIF [Suspect]
     Indication: SECONDARY PROGRESSIVE MULTIPLE SCLEROSIS
     Route: 058
     Dates: start: 20021021
  2. IBUPROFEN [Concomitant]
     Indication: PREMEDICATION
  3. AMBROTOSE [Concomitant]
     Indication: SECONDARY PROGRESSIVE MULTIPLE SCLEROSIS
  4. REBIF [Suspect]
     Route: 058
     Dates: start: 20110101

REACTIONS (7)
  - INJECTION SITE SCAR [None]
  - INJECTION SITE PAIN [None]
  - MUSCLE ATROPHY [None]
  - PNEUMONIA [None]
  - OROPHARYNGEAL BLISTERING [None]
  - INJECTION SITE ERYTHEMA [None]
  - CONGENITAL ARTERIAL MALFORMATION [None]
